FAERS Safety Report 17508645 (Version 5)
Quarter: 2024Q4

REPORT INFORMATION
  Report Type: Spontaneous
  Country: US (occurrence: US)
  Receive Date: 20200306
  Receipt Date: 20241121
  Transmission Date: 20250115
  Serious: No
  Sender: NOVARTIS
  Company Number: None

PATIENT

DRUGS (1)
  1. BEOVU [Suspect]
     Active Substance: BROLUCIZUMAB-DBLL
     Indication: Neovascular age-related macular degeneration
     Dosage: 6 MG, QMO
     Route: 050
     Dates: start: 20200203, end: 20200302

REACTIONS (1)
  - Eye inflammation [Unknown]
